FAERS Safety Report 6213932-9 (Version None)
Quarter: 2009Q2

REPORT INFORMATION
  Report Type: 
  Country: None (occurrence: None)
  Receive Date: 20090601
  Receipt Date: 20090601
  Transmission Date: 20091009
  Serious: Yes (Disabling)
  Sender: FDA-Public Use
  Company Number: None

PATIENT
  Age: 32 Year
  Sex: Male
  Weight: 84.8226 kg

DRUGS (1)
  1. CREST PROHEALTH CETYLPYRIDINIUM CHLORIDE 0.07% CREST [Suspect]
     Indication: DENTAL DISORDER PROPHYLAXIS
     Dosage: SWISH AND SPIT BID PO
     Route: 048

REACTIONS (1)
  - TOOTH DISCOLOURATION [None]
